FAERS Safety Report 12649509 (Version 3)
Quarter: 2016Q3

REPORT INFORMATION
  Report Type: Spontaneous
  Country: JP (occurrence: JP)
  Receive Date: 20160812
  Receipt Date: 20160826
  Transmission Date: 20161109
  Serious: Yes (Hospitalization, Other)
  Sender: FDA-Public Use
  Company Number: JP-009507513-1608JPN007157

PATIENT
  Age: 56 Year
  Sex: Female

DRUGS (9)
  1. DIART [Suspect]
     Active Substance: AZOSEMIDE
     Dosage: DAILY DOSAGE UNKNOWN
     Route: 065
  2. OLMETEC [Concomitant]
     Active Substance: OLMESARTAN MEDOXOMIL
     Dosage: DAILY DOSE UNKNOWN
     Route: 065
  3. JANUVIA [Suspect]
     Active Substance: SITAGLIPTIN PHOSPHATE
     Dosage: DAILY DOSAGE UNKNOWN
     Route: 048
     Dates: start: 201312, end: 201401
  4. BASEN [Concomitant]
     Active Substance: VOGLIBOSE
     Dosage: DAILY DOSE UNKNOWN
     Route: 065
  5. ZANTAC [Concomitant]
     Active Substance: RANITIDINE HYDROCHLORIDE
     Dosage: DAILY DOSAGE UNKNOWN
     Route: 065
  6. BENET [Concomitant]
     Active Substance: RISEDRONATE SODIUM
     Dosage: DAILY DOSE UNKNOWN
     Route: 065
  7. PROPACIL [Concomitant]
     Dosage: DAILY DOSE UNKNOWN
     Route: 065
  8. LIPITOR [Concomitant]
     Active Substance: ATORVASTATIN CALCIUM
     Dosage: DAILY DOSE UNKNOWN
     Route: 065
  9. ROHYPNOL [Concomitant]
     Active Substance: FLUNITRAZEPAM
     Dosage: DAILY DOSAGE UNKNOWN
     Route: 065

REACTIONS (1)
  - Interstitial lung disease [Not Recovered/Not Resolved]

NARRATIVE: CASE EVENT DATE: 20131228
